FAERS Safety Report 9376873 (Version 3)
Quarter: 2013Q4

REPORT INFORMATION
  Report Type: Report from Study
  Country: GB (occurrence: GB)
  Receive Date: 20130701
  Receipt Date: 20131029
  Transmission Date: 20140711
  Serious: Yes (Death, Hospitalization)
  Sender: FDA-Public Use
  Company Number: GB-CELGENEUS-167-C5013-11081796

PATIENT
  Age: 65 Year
  Sex: Male
  Weight: 85.6 kg

DRUGS (4)
  1. CC-5013 [Suspect]
     Indication: CHRONIC LYMPHOCYTIC LEUKAEMIA
     Dosage: 10 MILLIGRAM
     Route: 048
     Dates: start: 20110809, end: 20110815
  2. OMEPRAZOLE [Concomitant]
     Indication: PROPHYLAXIS AGAINST GASTROINTESTINAL ULCER
     Dosage: 10 MILLIGRAM
     Route: 048
     Dates: start: 2001, end: 20110906
  3. ENALAPRIL [Concomitant]
     Indication: HYPERTENSION
     Dosage: 10 MILLIGRAM
     Route: 048
     Dates: start: 2001, end: 20110906
  4. CODEINE PHOSPHATE [Concomitant]
     Indication: BACK PAIN
     Route: 065
     Dates: start: 20110811

REACTIONS (3)
  - Cardiac tamponade [Fatal]
  - Pericardial effusion [Not Recovered/Not Resolved]
  - Aspergillus infection [Not Recovered/Not Resolved]
